FAERS Safety Report 9522283 (Version 2)
Quarter: 2013Q3

REPORT INFORMATION
  Report Type: Report from Study
  Country: PE (occurrence: PE)
  Receive Date: 20130913
  Receipt Date: 20130913
  Transmission Date: 20140515
  Serious: Yes (Hospitalization)
  Sender: FDA-Public Use
  Company Number: PE-ABBOTT-13P-127-1131042-00

PATIENT
  Age: 74 Year
  Sex: Female

DRUGS (2)
  1. HUMIRA [Suspect]
     Indication: PSORIATIC ARTHROPATHY
     Route: 058
     Dates: start: 20120404, end: 20130725
  2. HUMIRA [Suspect]
     Dates: start: 201308

REACTIONS (1)
  - Meniscus injury [Recovering/Resolving]
